FAERS Safety Report 15661329 (Version 2)
Quarter: 2018Q4

REPORT INFORMATION
  Report Type: Spontaneous
  Country: US (occurrence: US)
  Receive Date: 20181127
  Receipt Date: 20181129
  Transmission Date: 20190205
  Serious: Yes (Other)
  Sender: FDA-Public Use
  Company Number: US-BAUSCH-BL-2018-032648

PATIENT
  Age: 74 Year
  Sex: Female

DRUGS (1)
  1. BUDESONIDE. [Suspect]
     Active Substance: BUDESONIDE
     Indication: COLITIS ULCERATIVE
     Dosage: EXTENDED RELEASE TABLETS
     Route: 048
     Dates: start: 20180917, end: 20180919

REACTIONS (3)
  - Diarrhoea [Recovered/Resolved]
  - Colitis ulcerative [Not Recovered/Not Resolved]
  - Product substitution issue [Recovered/Resolved]

NARRATIVE: CASE EVENT DATE: 201809
